FAERS Safety Report 9138335 (Version 2)
Quarter: 2013Q2

REPORT INFORMATION
  Report Type: Spontaneous
  Country: US (occurrence: US)
  Receive Date: 20130305
  Receipt Date: 20130401
  Transmission Date: 20140414
  Serious: Yes (Other)
  Sender: FDA-Public Use
  Company Number: US-BIOGENIDEC-2013BI020157

PATIENT
  Age: 55 Year
  Sex: Male

DRUGS (9)
  1. TYSABRI [Suspect]
     Indication: MULTIPLE SCLEROSIS
     Route: 042
     Dates: start: 20100402, end: 20121228
  2. HYDROCODONE [Concomitant]
  3. FLAXSEED OIL [Concomitant]
  4. CENTRUM [Concomitant]
  5. SENNA [Concomitant]
     Route: 048
  6. DOCUSATE [Concomitant]
  7. VITAMIN B [Concomitant]
  8. CITALOPRAM [Concomitant]
     Route: 048
  9. AMPYRA [Concomitant]
     Route: 048

REACTIONS (1)
  - Lymphocytosis [Not Recovered/Not Resolved]
